FAERS Safety Report 23632289 (Version 1)
Quarter: 2024Q1

REPORT INFORMATION
  Report Type: Spontaneous
  Country: DE (occurrence: DE)
  Receive Date: 20240314
  Receipt Date: 20240314
  Transmission Date: 20240410
  Serious: Yes (Other)
  Sender: FDA-Public Use
  Company Number: None

PATIENT
  Age: 83 Year
  Sex: Female
  Weight: 73 kg

DRUGS (3)
  1. RANEXA [Suspect]
     Active Substance: RANOLAZINE
     Indication: Coronary angioplasty
     Dosage: 750 MG, QD
     Route: 048
     Dates: start: 20240216, end: 20240221
  2. RANEXA [Suspect]
     Active Substance: RANOLAZINE
     Indication: Coronary artery disease
     Dosage: 750 MG, QD
     Route: 048
     Dates: start: 20240216, end: 20240221
  3. RANEXA [Suspect]
     Active Substance: RANOLAZINE
     Indication: Angina pectoris
     Dosage: 750 MG, QD
     Route: 048
     Dates: start: 20240216, end: 20240221

REACTIONS (11)
  - Circulatory collapse [Unknown]
  - Dyspnoea at rest [Recovering/Resolving]
  - Constipation [Unknown]
  - Fatigue [Unknown]
  - Blood pressure decreased [Unknown]
  - Discomfort [Unknown]
  - Dizziness [Not Recovered/Not Resolved]
  - Dyspnoea exertional [Recovering/Resolving]
  - Tremor [Unknown]
  - Somnolence [Unknown]
  - Drug ineffective [Recovered/Resolved]

NARRATIVE: CASE EVENT DATE: 20240216
